FAERS Safety Report 9453239 (Version 1)
Quarter: 2013Q3

REPORT INFORMATION
  Report Type: Spontaneous
  Country: US (occurrence: US)
  Receive Date: 20130812
  Receipt Date: 20130812
  Transmission Date: 20140515
  Serious: No
  Sender: FDA-Public Use
  Company Number: US-TEVA-425770USA

PATIENT
  Age: 24 Year
  Sex: Female
  Weight: 104.42 kg

DRUGS (5)
  1. PLAN B ONE-STEP [Suspect]
     Indication: POST COITAL CONTRACEPTION
     Dosage: 1.5 MILLIGRAM DAILY;
     Route: 042
     Dates: start: 20130803, end: 20130803
  2. AMOXICILLIN [Suspect]
     Indication: PHARYNGITIS STREPTOCOCCAL
  3. METFORMIN [Concomitant]
     Indication: POLYCYSTIC OVARIES
  4. HYDROCHLOROTHIAZIDE [Concomitant]
     Indication: HYPERTENSION
  5. POTASSIUM [Concomitant]
     Indication: HYPOKALAEMIA

REACTIONS (2)
  - Pelvic pain [Recovered/Resolved]
  - Pelvic pain [Recovered/Resolved]
